FAERS Safety Report 6615342-9 (Version None)
Quarter: 2010Q1

REPORT INFORMATION
  Report Type: 
  Country: None (occurrence: None)
  Receive Date: 20100305
  Receipt Date: 20090720
  Transmission Date: 20100710
  Serious: No
  Sender: FDA-Public Use
  Company Number: A0797654A

PATIENT
  Age: 64 Year
  Sex: Female

DRUGS (8)
  1. REQUIP [Suspect]
     Indication: PARKINSON'S DISEASE
     Dosage: 4MG THREE TIMES PER DAY
     Route: 048
  2. SYNTHROID [Concomitant]
  3. LASIX [Concomitant]
  4. ZETIA [Concomitant]
  5. SINEMET [Concomitant]
  6. PRAVACHOL [Concomitant]
  7. CLONAZEPAM [Concomitant]
  8. POTASSIUM [Concomitant]

REACTIONS (2)
  - CONSTIPATION [None]
  - ILL-DEFINED DISORDER [None]
